FAERS Safety Report 7824151 (Version 6)
Quarter: 2012Q4

REPORT INFORMATION
  Report Type: 
  Country: US (occurrence: US)
  Receive Date: 20110223
  Receipt Date: 20120906
  Transmission Date: 20130627
  Serious: Yes (Hospitalization, Other)
  Sender: FDA-Public Use
  Company Number: US-009507513-1102USA02276

PATIENT

DRUGS (3)
  1. FOSAMAX [Suspect]
     Indication: OSTEOPOROSIS PROPHYLAXIS
     Dosage: 70 mg, QW
     Route: 048
     Dates: start: 1999, end: 2009
  2. FOSAMAX [Suspect]
     Indication: OSTEOPENIA
  3. PREVACID [Concomitant]
     Indication: GASTROOESOPHAGEAL REFLUX DISEASE
     Dates: start: 1999, end: 2004

REACTIONS (57)
  - Femur fracture [Recovered/Resolved]
  - Femur fracture [Unknown]
  - Myocardial infarction [Unknown]
  - Venous thrombosis limb [Unknown]
  - Ankle fracture [Unknown]
  - Road traffic accident [Unknown]
  - Osteoarthritis [Unknown]
  - Carpal tunnel syndrome [Unknown]
  - Type 2 diabetes mellitus [Unknown]
  - Hypertension [Unknown]
  - Hyperlipidaemia [Unknown]
  - Chronic obstructive pulmonary disease [Unknown]
  - Synovitis [Unknown]
  - Bursitis [Unknown]
  - Cardiac murmur [Unknown]
  - Mitral valve prolapse [Unknown]
  - Arteriosclerosis coronary artery [Unknown]
  - Hypothyroidism [Unknown]
  - Colitis [Unknown]
  - Intervertebral disc degeneration [Unknown]
  - Lumbar spinal stenosis [Unknown]
  - Cellulitis [Unknown]
  - Abscess limb [Unknown]
  - Lumbar radiculopathy [Unknown]
  - Bursitis [Unknown]
  - Musculoskeletal pain [Unknown]
  - Rotator cuff syndrome [Unknown]
  - Cataract [Unknown]
  - Dermatitis contact [Unknown]
  - Eczema [Unknown]
  - Rhinitis allergic [Unknown]
  - Mammogram abnormal [Unknown]
  - Haematoma [Unknown]
  - Anxiety [Unknown]
  - Hypoaesthesia [Unknown]
  - Spinal osteoarthritis [Unknown]
  - Arthritis [Unknown]
  - Asthma [Unknown]
  - Arthropathy [Unknown]
  - Lordosis [Unknown]
  - Spinal osteoarthritis [Unknown]
  - Myocardial ischaemia [Unknown]
  - Lymphoedema [Unknown]
  - Exercise lack of [Unknown]
  - Heart rate irregular [Unknown]
  - Angina pectoris [Unknown]
  - Arrhythmia [Unknown]
  - Rash [Unknown]
  - Hypersensitivity [Unknown]
  - Fatigue [Unknown]
  - Oedema peripheral [Unknown]
  - Gastrooesophageal reflux disease [Unknown]
  - Stress fracture [None]
  - Electrocardiogram abnormal [None]
  - Traumatic fracture [None]
  - Vitamin D decreased [None]
  - Hip fracture [None]
